FAERS Safety Report 6245781-X (Version None)
Quarter: 2009Q2

REPORT INFORMATION
  Report Type: 
  Country: None (occurrence: None)
  Receive Date: 20090624
  Receipt Date: 20090608
  Transmission Date: 20091009
  Serious: Yes (Death)
  Sender: FDA-Public Use
  Company Number: 2009AL003824

PATIENT
  Age: 89 Year
  Sex: Female

DRUGS (13)
  1. DIGOXIN [Suspect]
     Indication: CARDIAC DISORDER
     Dosage: 0.125MG, DAILY, PO
     Route: 048
     Dates: start: 20070201, end: 20090425
  2. METOPROLOL SUCCINATE [Concomitant]
  3. CISINOPRIL [Concomitant]
  4. ASPIRIN [Concomitant]
  5. DILTIAZEM [Concomitant]
  6. LASIX [Concomitant]
  7. WARFARIN [Concomitant]
  8. SIMVASTATIN [Concomitant]
  9. OXYBUTYNIN CHLORIDE [Concomitant]
  10. NEXIUM [Concomitant]
  11. VESICARE [Concomitant]
  12. ENABLEX [Concomitant]
  13. LEVOTHYROXINE SODIUM [Concomitant]

REACTIONS (8)
  - ACUTE MYOCARDIAL INFARCTION [None]
  - CEREBROVASCULAR ACCIDENT [None]
  - DEPRESSION [None]
  - EMOTIONAL DISTRESS [None]
  - HEART RATE ABNORMAL [None]
  - INJURY [None]
  - PAIN [None]
  - RHEUMATOID ARTHRITIS [None]
